FAERS Safety Report 18184809 (Version 1)
Quarter: 2020Q3

REPORT INFORMATION
  Report Type: Spontaneous
  Country: US (occurrence: US)
  Receive Date: 20200824
  Receipt Date: 20200824
  Transmission Date: 20201103
  Serious: No
  Sender: FDA-Public Use
  Company Number: US-SHIRE-US202026643

PATIENT

DRUGS (4)
  1. GATTEX [Suspect]
     Active Substance: TEDUGLUTIDE\WATER
     Indication: PRODUCT USED FOR UNKNOWN INDICATION
     Dosage: 0.3600, UNK, 1X/DAY:QD
     Route: 058
     Dates: start: 20191018
  2. GATTEX [Suspect]
     Active Substance: TEDUGLUTIDE\WATER
     Indication: PRODUCT USED FOR UNKNOWN INDICATION
     Dosage: 0.3600, UNK, 1X/DAY:QD
     Route: 058
     Dates: start: 20191018
  3. GATTEX [Suspect]
     Active Substance: TEDUGLUTIDE\WATER
     Indication: PRODUCT USED FOR UNKNOWN INDICATION
     Dosage: 0.3600, UNK, 1X/DAY:QD
     Route: 058
     Dates: start: 20191018
  4. GATTEX [Suspect]
     Active Substance: TEDUGLUTIDE\WATER
     Indication: PRODUCT USED FOR UNKNOWN INDICATION
     Dosage: 0.3600, UNK, 1X/DAY:QD
     Route: 058
     Dates: start: 20191018

REACTIONS (2)
  - Stoma complication [Not Recovered/Not Resolved]
  - Injection site reaction [Unknown]
